FAERS Safety Report 4373784-9 (Version None)
Quarter: 2004Q2

REPORT INFORMATION
  Report Type: 
  Country: None (occurrence: None)
  Receive Date: 20040607
  Receipt Date: 20040607
  Transmission Date: 20050107
  Serious: Yes (Hospitalization)
  Sender: FDA-Public Use
  Company Number: None

PATIENT
  Sex: Male
  Weight: 74.8435 kg

DRUGS (1)
  1. PLAVIX [Suspect]
     Dosage: 75 MG ONCE DAILY ORAL
     Route: 048
     Dates: start: 20040501, end: 20040520

REACTIONS (5)
  - ABDOMINAL PAIN LOWER [None]
  - ASTHENIA [None]
  - BLOOD PRESSURE INCREASED [None]
  - RENAL HAEMORRHAGE [None]
  - RENAL PAIN [None]
